FAERS Safety Report 9842784 (Version 1)
Quarter: 2014Q1

REPORT INFORMATION
  Report Type: Spontaneous
  Country: IN (occurrence: IN)
  Receive Date: 20140124
  Receipt Date: 20140124
  Transmission Date: 20141002
  Serious: Yes (Other)
  Sender: FDA-Public Use
  Company Number: PHHY2014IN006944

PATIENT
  Age: 52 Year
  Sex: Female

DRUGS (2)
  1. LEFLUNOMIDE [Suspect]
     Indication: RHEUMATOID ARTHRITIS
     Dosage: 10 MG, UNK
  2. PREDNISOLONE [Suspect]
     Indication: RHEUMATOID ARTHRITIS
     Dosage: 5 MG, UNK

REACTIONS (6)
  - Lepromatous leprosy [Recovered/Resolved]
  - Rash macular [Recovered/Resolved]
  - Skin lesion [Recovered/Resolved]
  - Local swelling [Recovered/Resolved]
  - Hyperaesthesia [Recovered/Resolved]
  - Hypoaesthesia [Recovered/Resolved]
